FAERS Safety Report 10261261 (Version 1)
Quarter: 2014Q2

REPORT INFORMATION
  Report Type: Spontaneous
  Country: AU (occurrence: AU)
  Receive Date: 20140626
  Receipt Date: 20140626
  Transmission Date: 20141212
  Serious: Yes (Other)
  Sender: FDA-Public Use
  Company Number: AU-BAYER-2014-093971

PATIENT
  Sex: Female

DRUGS (8)
  1. NIFEDIPINE [Suspect]
     Route: 064
  2. NIFEDIPINE [Suspect]
     Route: 064
  3. LABETALOL [Concomitant]
     Route: 064
  4. LABETALOL [Concomitant]
     Route: 064
  5. METHYLDOPA [Concomitant]
     Route: 064
  6. METHYLDOPA [Concomitant]
     Route: 064
  7. CLONIDINE [Concomitant]
     Route: 064
  8. CLONIDINE [Concomitant]
     Route: 064

REACTIONS (2)
  - Premature baby [None]
  - Low birth weight baby [None]
